FAERS Safety Report 4999906-4 (Version None)
Quarter: 2006Q2

REPORT INFORMATION
  Report Type: 
  Country: None (occurrence: None)
  Receive Date: 20060509
  Receipt Date: 20060509
  Transmission Date: 20061013
  Serious: No
  Sender: FDA-Public Use
  Company Number: None

PATIENT
  Age: 59 Year
  Sex: Male
  Weight: 90.7194 kg

DRUGS (3)
  1. ZOCOR [Suspect]
     Indication: HYPERCHOLESTEROLAEMIA
     Dosage: 20MG    QHS   PO
     Route: 048
     Dates: start: 20060401, end: 20060407
  2. ACTONEL [Concomitant]
  3. TESTOSTERONE [Concomitant]

REACTIONS (2)
  - ABNORMAL DREAMS [None]
  - MIDDLE INSOMNIA [None]
